FAERS Safety Report 7278166-8 (Version None)
Quarter: 2011Q1

REPORT INFORMATION
  Report Type: 
  Country: None (occurrence: None)
  Receive Date: 20110207
  Receipt Date: 20110203
  Transmission Date: 20110831
  Serious: Yes (Other)
  Sender: FDA-Public Use
  Company Number: A0911758B

PATIENT
  Sex: Female

DRUGS (2)
  1. SORIATANE [Suspect]
     Indication: PRODUCT USED FOR UNKNOWN INDICATION
     Route: 064
     Dates: start: 19970501, end: 19970601
  2. UNKNOWN MEDICATION [Concomitant]

REACTIONS (6)
  - MATERNAL DRUGS AFFECTING FOETUS [None]
  - DRUG EXPOSURE DURING PREGNANCY [None]
  - DEPRESSION [None]
  - ANGER [None]
  - PREMATURE BABY [None]
  - ANXIETY [None]
